FAERS Safety Report 9244382 (Version 1)
Quarter: 2013Q1

REPORT INFORMATION
  Report Type: Spontaneous
  Country: US (occurrence: None)
  Receive Date: 20121128
  Receipt Date: 20121128
  Transmission Date: 20140127
  Serious: Yes (Hospitalization)
  Sender: FDA-Public Use
  Company Number: 003-065

PATIENT
  Age: 33 Year
  Sex: Male

DRUGS (1)
  1. CROFAB [Suspect]
     Indication: SNAKE BITE
     Dosage: 46 TOTAL VIALS?2ND NDC#?50633-110-12
     Dates: start: 20111012, end: 20111018

REACTIONS (3)
  - Thrombocytopenia [None]
  - Swelling [None]
  - Ecchymosis [None]
